FAERS Safety Report 8273537-5 (Version None)
Quarter: 2012Q2

REPORT INFORMATION
  Report Type: 
  Country: None (occurrence: None)
  Receive Date: 20120411
  Receipt Date: 20111220
  Transmission Date: 20120825
  Serious: No
  Sender: FDA-Public Use
  Company Number: US-TEVA-2011005893

PATIENT
  Sex: Female
  Weight: 50.848 kg

DRUGS (2)
  1. NUVIGIL [Suspect]
     Indication: HYPERSOMNIA
     Dosage: 150 MILLIGRAM;
     Route: 048
     Dates: start: 20111116, end: 20111119
  2. MICRONOR [Concomitant]

REACTIONS (2)
  - DRUG INEFFECTIVE FOR UNAPPROVED INDICATION [None]
  - ANXIETY [None]
